FAERS Safety Report 5706260-9 (Version None)
Quarter: 2008Q2

REPORT INFORMATION
  Report Type: 
  Country: None (occurrence: None)
  Receive Date: 20080415
  Receipt Date: 20080404
  Transmission Date: 20081010
  Serious: Yes (Hospitalization, Disabling)
  Sender: FDA-Public Use
  Company Number: FR-SANOFI-SYNTHELABO-A02200801165

PATIENT
  Age: 62 Year
  Sex: Female
  Weight: 50 kg

DRUGS (17)
  1. ENOXAPARIN SODIUM [Concomitant]
     Indication: THROMBOSIS PROPHYLAXIS
     Dosage: 4000 IU
     Route: 058
  2. MORPHINE [Concomitant]
     Indication: POSTOPERATIVE ANALGESIA
     Dosage: UNK
     Route: 042
  3. KETOPROFEN [Concomitant]
     Indication: POSTOPERATIVE ANALGESIA
     Dosage: UNK
     Route: 065
  4. PARACETAMOL [Concomitant]
     Indication: PERIOPERATIVE ANALGESIA
     Dosage: UNK
     Route: 065
  5. SEVOFLURANE [Concomitant]
     Indication: GENERAL ANAESTHESIA
     Dosage: UNK
     Route: 055
  6. CISATRACURIUM [Concomitant]
     Indication: GENERAL ANAESTHESIA
     Dosage: UNK
     Route: 042
  7. PROPOFOL [Concomitant]
     Indication: GENERAL ANAESTHESIA
     Dosage: UNK
     Route: 042
  8. SUFENTANIL CITRATE [Concomitant]
     Indication: GENERAL ANAESTHESIA
     Dosage: 10 MCG
     Route: 008
  9. SUFENTANIL CITRATE [Concomitant]
     Dosage: UNK
     Route: 042
  10. ROPIVACAINE [Concomitant]
     Indication: EPIDURAL ANAESTHESIA
     Dosage: 7 ML
     Route: 037
  11. ROPIVACAINE [Concomitant]
     Dosage: 5 ML/H
     Route: 037
  12. CARBAMAZEPINE [Concomitant]
     Indication: DRUG USE FOR UNKNOWN INDICATION
     Dosage: UNK
     Route: 065
  13. HYDROXYZINE [Concomitant]
     Indication: DRUG USE FOR UNKNOWN INDICATION
     Dosage: UNK
     Route: 065
  14. ALPRAZOLAM [Concomitant]
     Indication: DRUG USE FOR UNKNOWN INDICATION
     Dosage: UNK
     Route: 065
  15. TRAMADOL HCL [Concomitant]
     Indication: DRUG USE FOR UNKNOWN INDICATION
     Dosage: UNK
     Route: 065
  16. VERAPAMIL [Concomitant]
     Indication: DRUG USE FOR UNKNOWN INDICATION
     Dosage: UNK
     Route: 065
  17. CLOPIDOGREL [Suspect]
     Indication: ARTERIAL DISORDER
     Dosage: UNK
     Route: 048

REACTIONS (2)
  - SPINAL CORD ISCHAEMIA [None]
  - THERAPY CESSATION [None]
